FAERS Safety Report 21452559 (Version 1)
Quarter: 2022Q4

REPORT INFORMATION
  Report Type: Report from Study
  Country: US (occurrence: None)
  Receive Date: 20221013
  Receipt Date: 20221013
  Transmission Date: 20230113
  Serious: Yes (Hospitalization, Other)
  Sender: FDA-Public Use
  Company Number: US-ROCHE-2810794

PATIENT
  Age: 69 Year
  Sex: Male
  Weight: 89.05 kg

DRUGS (2)
  1. ATEZOLIZUMAB [Suspect]
     Active Substance: ATEZOLIZUMAB
     Indication: Bladder transitional cell carcinoma
     Dosage: 1200 MG IV OVER 60 MINUTES ON DAY 1??MOST RECENT DOSE  : 17/MAY/2021?22/DEC/2021, HE RECEIVED LAST D
     Route: 041
     Dates: start: 20201109, end: 20210222
  2. ERIBULIN MESYLATE [Suspect]
     Active Substance: ERIBULIN MESYLATE
     Indication: Bladder transitional cell carcinoma
     Dosage: 1.4 MG/M2 IV OVER 2-3 MINUTES ON DAYS 1 AND 8, MOST RECENT DOSE 5.58MG : 24/MAY/2021?22/DEC/2021, HE
     Route: 042
     Dates: start: 20201109, end: 20210301

REACTIONS (9)
  - Urinary tract infection [Recovered/Resolved]
  - Hypothyroidism [Unknown]
  - Blood bilirubin increased [Recovered/Resolved]
  - Lipase increased [Recovering/Resolving]
  - Blood alkaline phosphatase [Recovered/Resolved]
  - Dyspnoea [Recovered/Resolved]
  - Pulmonary oedema [Recovered/Resolved]
  - Cardiac failure [Recovered/Resolved]
  - Hypertension [Unknown]

NARRATIVE: CASE EVENT DATE: 20210306
